FAERS Safety Report 18489407 (Version 2)
Quarter: 2020Q4

REPORT INFORMATION
  Report Type: Spontaneous
  Country: US (occurrence: US)
  Receive Date: 20201111
  Receipt Date: 20201117
  Transmission Date: 20210114
  Serious: Yes (Hospitalization, Other)
  Sender: FDA-Public Use
  Company Number: US-ALEMBIC PHARMACUETICALS LIMITED-2020SCAL000486

PATIENT

DRUGS (6)
  1. CIPROFLOXACIN. [Suspect]
     Active Substance: CIPROFLOXACIN
     Indication: ABDOMINAL ABSCESS
     Dosage: 500 MILLIGRAM, BID FOR THE PAST 3 WEEKS
  2. AZTREONAM. [Concomitant]
     Active Substance: AZTREONAM
     Indication: ABDOMINAL ABSCESS
     Dosage: TRANSITION FROM CIPROFLOXACIN TO AZTREONAM
  3. METRONIDAZOLE. [Suspect]
     Active Substance: METRONIDAZOLE
     Indication: ABDOMINAL ABSCESS
     Dosage: 500 MILLIGRAM, BID FOR THE PAST 3 WEEKS
  4. CIPROFLOXACIN. [Suspect]
     Active Substance: CIPROFLOXACIN
     Indication: DIVERTICULITIS
  5. METRONIDAZOLE. [Suspect]
     Active Substance: METRONIDAZOLE
     Indication: DIVERTICULITIS
  6. AZTREONAM. [Concomitant]
     Active Substance: AZTREONAM
     Indication: DIVERTICULITIS

REACTIONS (11)
  - Somnolence [Recovered/Resolved]
  - Vomiting [Recovered/Resolved]
  - Dizziness [Recovered/Resolved]
  - Nausea [Recovered/Resolved]
  - Confusional state [Recovered/Resolved]
  - Seizure like phenomena [Recovered/Resolved]
  - General physical health deterioration [Unknown]
  - Fatigue [Recovered/Resolved]
  - Asthenia [Unknown]
  - Posterior reversible encephalopathy syndrome [Unknown]
  - Unresponsive to stimuli [Recovered/Resolved]
